FAERS Safety Report 7553842-8 (Version None)
Quarter: 2011Q2

REPORT INFORMATION
  Report Type: 
  Country: None (occurrence: None)
  Receive Date: 20110617
  Receipt Date: 20110607
  Transmission Date: 20111010
  Serious: Yes (Other)
  Sender: FDA-Public Use
  Company Number: GB-JNJFOC-20110602907

PATIENT
  Age: 43 Year
  Sex: Male

DRUGS (10)
  1. PERINDOPRIL ERBUMINE [Interacting]
     Indication: HYPERTENSION
     Route: 065
     Dates: start: 20080101, end: 20080101
  2. RITONAVIR [Interacting]
     Indication: HIV INFECTION
     Route: 065
     Dates: start: 20070101
  3. TENOFOVIR DISOPROXIL FUMARATE [Concomitant]
     Route: 065
     Dates: start: 20070101
  4. DARUNAVIR ETHANOLATE [Suspect]
     Indication: HIV INFECTION
     Route: 048
     Dates: start: 20070101
  5. ANTIVIRALS NOS [Concomitant]
     Indication: HIV INFECTION
     Route: 065
     Dates: start: 20070101
  6. MARAVIROC [Concomitant]
     Indication: HIV INFECTION
     Route: 065
  7. RALTEGRAVIR [Concomitant]
     Indication: HIV INFECTION
     Route: 065
  8. ANTIVIRALS NOS [Concomitant]
     Route: 065
     Dates: start: 20070101
  9. TENOFOVIR DISOPROXIL FUMARATE [Concomitant]
     Indication: HIV INFECTION
     Route: 065
  10. EMTRICITABINE [Concomitant]
     Indication: HIV INFECTION
     Route: 065
     Dates: start: 20070101

REACTIONS (4)
  - RENAL IMPAIRMENT [None]
  - DRUG LEVEL INCREASED [None]
  - DRUG INTERACTION [None]
  - BLOOD CREATININE INCREASED [None]
